FAERS Safety Report 6305365-1 (Version None)
Quarter: 2009Q3

REPORT INFORMATION
  Report Type: 
  Country: None (occurrence: None)
  Receive Date: 20090810
  Receipt Date: 20090810
  Transmission Date: 20100115
  Serious: Yes (Other)
  Sender: FDA-Public Use
  Company Number: None

PATIENT
  Weight: 80.2867 kg

DRUGS (10)
  1. LAMICTAL [Suspect]
     Indication: BIPOLAR I DISORDER
     Dosage: 100 MG 1 TAB BID PO
     Route: 048
     Dates: start: 20090601
  2. COMPAZINE [Concomitant]
  3. LAMIS [Concomitant]
  4. FLEX [Concomitant]
  5. EFFEXOR XR [Concomitant]
  6. ULTRAM [Concomitant]
  7. SEROQUEL [Concomitant]
  8. MOS [Concomitant]
  9. TOPOROL [Concomitant]
  10. SYNTHROID [Concomitant]

REACTIONS (14)
  - ACTIVITIES OF DAILY LIVING IMPAIRED [None]
  - AGITATION [None]
  - APHASIA [None]
  - CONFUSIONAL STATE [None]
  - DEPRESSION [None]
  - FATIGUE [None]
  - FEELING ABNORMAL [None]
  - INSOMNIA [None]
  - IRRITABILITY [None]
  - MOOD SWINGS [None]
  - SEDATION [None]
  - SLEEP DISORDER [None]
  - SOMNOLENCE [None]
  - THINKING ABNORMAL [None]
